FAERS Safety Report 13075463 (Version 3)
Quarter: 2017Q1

REPORT INFORMATION
  Report Type: Report from Study
  Country: US (occurrence: US)
  Receive Date: 20161230
  Receipt Date: 20170112
  Transmission Date: 20170428
  Serious: Yes (Hospitalization)
  Sender: FDA-Public Use
  Company Number: US-PFIZER INC-2016594788

PATIENT
  Age: 43 Year
  Sex: Female

DRUGS (2)
  1. IBRANCE [Suspect]
     Active Substance: PALBOCICLIB
     Dosage: 100 MG, DAILY
     Route: 048
     Dates: start: 201609
  2. IBRANCE [Suspect]
     Active Substance: PALBOCICLIB
     Indication: BREAST CANCER FEMALE
     Dosage: 125 MG, DAILY
     Route: 048
     Dates: start: 20160205, end: 201609

REACTIONS (7)
  - Fatigue [Unknown]
  - Vomiting [Unknown]
  - White blood cell count decreased [Unknown]
  - Skin discolouration [Unknown]
  - Swelling [Unknown]
  - Weight increased [Unknown]
  - Parosmia [Unknown]

NARRATIVE: CASE EVENT DATE: 201602
